FAERS Safety Report 5213063-0 (Version None)
Quarter: 2007Q1

REPORT INFORMATION
  Report Type: 
  Country: None (occurrence: None)
  Receive Date: 20070119
  Receipt Date: 20061018
  Transmission Date: 20070707
  Serious: No
  Sender: FDA-Public Use
  Company Number: US-GLAXOSMITHKLINE-A0621457A

PATIENT
  Age: 64 Year
  Sex: Female
  Weight: 79.5 kg

DRUGS (3)
  1. HYCAMTIN [Suspect]
     Route: 042
     Dates: start: 20060807
  2. CISPLATIN [Concomitant]
  3. RADIATION [Concomitant]

REACTIONS (3)
  - ERYTHEMA [None]
  - INFLAMMATION [None]
  - RECALL PHENOMENON [None]
